FAERS Safety Report 4779309-8 (Version None)
Quarter: 2005Q3

REPORT INFORMATION
  Report Type: 
  Country: None (occurrence: None)
  Receive Date: 20050914
  Receipt Date: 20050712
  Transmission Date: 20060218
  Serious: Yes (Other)
  Sender: FDA-Public Use
  Company Number: 410675

PATIENT
  Age: 57 Year
  Sex: Female
  Weight: 56.2 kg

DRUGS (2)
  1. BONIVA [Suspect]
     Indication: OSTEOPOROSIS
     Dosage: ORAL
     Route: 048
     Dates: start: 20050711, end: 20050711
  2. CALCIUM (CALCIUM) [Concomitant]

REACTIONS (6)
  - ASTHENIA [None]
  - DISEASE RECURRENCE [None]
  - GASTRIC ULCER [None]
  - NAUSEA [None]
  - ORAL INTAKE REDUCED [None]
  - WEIGHT DECREASED [None]
